FAERS Safety Report 8471668 (Version 2)
Quarter: 2013Q1

REPORT INFORMATION
  Report Type: Spontaneous
  Country: US (occurrence: US)
  Receive Date: 20120322
  Receipt Date: 20130122
  Transmission Date: 20140127
  Serious: Yes (Congenital Anomaly, Other)
  Sender: FDA-Public Use
  Company Number: US-PFIZER INC-2012072318

PATIENT
  Sex: Female

DRUGS (10)
  1. ZOLOFT [Suspect]
     Dosage: UNK
     Route: 064
     Dates: start: 2005, end: 2010
  2. PRENATAL VITAMINS [Concomitant]
     Dosage: UNK
     Route: 064
  3. TYLENOL [Concomitant]
     Dosage: UNK
     Route: 064
  4. EXCEDRIN MIGRAINE [Concomitant]
     Dosage: UNK
     Route: 064
  5. VITAMIN C [Concomitant]
     Dosage: UNK
     Route: 064
  6. MULTIVITAMINS [Concomitant]
     Dosage: UNK
     Route: 064
  7. BIOTINE [Concomitant]
     Dosage: UNK
     Route: 064
  8. GLUCOSAMINE CHONDROITIN [Concomitant]
     Dosage: UNK
     Route: 064
  9. DAYQUIL [Concomitant]
     Dosage: UNK
     Route: 064
  10. NYQUIL [Concomitant]
     Dosage: UNK
     Route: 064

REACTIONS (3)
  - Maternal exposure timing unspecified [Unknown]
  - Multiple congenital abnormalities [Unknown]
  - Talipes [Unknown]
